FAERS Safety Report 17054345 (Version 1)
Quarter: 2019Q4

REPORT INFORMATION
  Report Type: Spontaneous
  Country: SE (occurrence: SE)
  Receive Date: 20191120
  Receipt Date: 20191120
  Transmission Date: 20200122
  Serious: Yes (Hospitalization)
  Sender: FDA-Public Use
  Company Number: SE-MYLANLABS-2019M1110510

PATIENT
  Age: 39 Year
  Sex: Male

DRUGS (1)
  1. LERGIGAN (PROMETHAZINE HYDROCHLORIDE) [Suspect]
     Active Substance: PROMETHAZINE HYDROCHLORIDE
     Indication: PRODUCT USED FOR UNKNOWN INDICATION
     Dosage: 38 ST 25 MG
     Route: 048
     Dates: start: 20190406, end: 20190406

REACTIONS (6)
  - Dysarthria [Unknown]
  - Confusional state [Unknown]
  - Pulse abnormal [Unknown]
  - Electrocardiogram PQ interval shortened [Unknown]
  - Intentional overdose [Unknown]
  - Intentional self-injury [Unknown]

NARRATIVE: CASE EVENT DATE: 20190406
